FAERS Safety Report 16627306 (Version 1)
Quarter: 2019Q3

REPORT INFORMATION
  Report Type: Spontaneous
  Country: US (occurrence: US)
  Receive Date: 20190724
  Receipt Date: 20190724
  Transmission Date: 20191004
  Serious: Yes (Life-Threatening, Hospitalization)
  Sender: FDA-Public Use
  Company Number: US-TEVA-2019-US-1081522

PATIENT
  Age: 35 Year
  Sex: Male

DRUGS (1)
  1. DICLOFENAC POTASSIUM. [Suspect]
     Active Substance: DICLOFENAC POTASSIUM
     Indication: BACK PAIN
     Dosage: 200 MILLIGRAM DAILY; FOR 1 WEEK
     Route: 065

REACTIONS (4)
  - Seizure [Recovered/Resolved]
  - Encephalopathy [Recovered/Resolved]
  - Thrombotic thrombocytopenic purpura [Recovered/Resolved]
  - Systemic inflammatory response syndrome [Recovered/Resolved]
